FAERS Safety Report 4380338-7 (Version None)
Quarter: 2004Q2

REPORT INFORMATION
  Report Type: 
  Country: None (occurrence: None)
  Receive Date: 20040614
  Receipt Date: 20040531
  Transmission Date: 20050107
  Serious: Yes (Hospitalization)
  Sender: FDA-Public Use
  Company Number: 2004022525

PATIENT
  Age: 70 Year
  Sex: Female

DRUGS (11)
  1. CARDENALIN (DOXAZOSIN) [Suspect]
     Indication: HYPERTENSION
     Dosage: 2 MG (1 MG, 2 IN 1 D), ORAL
     Route: 048
     Dates: start: 20030501, end: 20040204
  2. LOXONIN (LOXOPROFEN SODIUM) [Suspect]
     Indication: PAIN IN EXTREMITY
     Dosage: 60 MG (20 MG 3 IN 1 D) ORAL
     Route: 048
     Dates: start: 20040122, end: 20040225
  3. CANDESARTAN CILEXETIL (CANDESARTAN CILEXETIL) [Concomitant]
  4. AMLODIPINE BESYLATE [Concomitant]
  5. SIMVASTATIN [Concomitant]
  6. LANSOPRAZOLE [Concomitant]
  7. POTASSIUM GLUCONATE (POTASSIUM GLUCONATE) [Concomitant]
  8. GLICLAZIDE (GLICLAZIDE) [Concomitant]
  9. TOCOPHERYL NICOTINATE (TOCOPHERYL NICOTINATE) [Concomitant]
  10. CARBAZOCHROME SODIUM SULFONATE (CARBAZOCHROME SODIUM SULFONATE) [Concomitant]
  11. AMANTADINE HCL [Concomitant]

REACTIONS (5)
  - BLOOD ALKALINE PHOSPHATASE INCREASED [None]
  - DRUG INTERACTION [None]
  - FALL [None]
  - GAMMA-GLUTAMYLTRANSFERASE INCREASED [None]
  - PAIN IN EXTREMITY [None]
